FAERS Safety Report 23289875 (Version 1)
Quarter: 2023Q4

REPORT INFORMATION
  Report Type: Spontaneous
  Country: US (occurrence: US)
  Receive Date: 20231212
  Receipt Date: 20231212
  Transmission Date: 20240110
  Serious: Yes (Other)
  Sender: FDA-Public Use
  Company Number: US-009507513-2312USA004738

PATIENT
  Age: 13 Year
  Sex: Male

DRUGS (1)
  1. NOXAFIL [Suspect]
     Active Substance: POSACONAZOLE
     Indication: Histoplasmosis disseminated
     Dosage: UNK
     Route: 048

REACTIONS (3)
  - Acquired apparent mineralocorticoid excess [Unknown]
  - 11-beta-hydroxylase deficiency [Unknown]
  - Product use in unapproved indication [Unknown]
